FAERS Safety Report 10714549 (Version 3)
Quarter: 2015Q2

REPORT INFORMATION
  Report Type: Spontaneous
  Country: DE (occurrence: DE)
  Receive Date: 20150115
  Receipt Date: 20150506
  Transmission Date: 20150821
  Serious: Yes (Other)
  Sender: FDA-Public Use
  Company Number: DE-ASTELLAS-2014US020478

PATIENT
  Age: 78 Year
  Sex: Female

DRUGS (2)
  1. OVESTIN [Concomitant]
     Active Substance: ESTRIOL
     Indication: ATROPHY
     Dosage: UNK UNK, ONCE DAILY IN THE EVENING
     Route: 065
     Dates: start: 2005
  2. VESIKUR [Suspect]
     Active Substance: SOLIFENACIN SUCCINATE
     Indication: URINARY INCONTINENCE
     Route: 048
     Dates: start: 20080808, end: 201412

REACTIONS (7)
  - Somnolence [Unknown]
  - Abdominal distension [Unknown]
  - Faeces hard [Unknown]
  - Fatigue [Unknown]
  - Constipation [Unknown]
  - Nausea [Unknown]
  - Syncope [Unknown]

NARRATIVE: CASE EVENT DATE: 20140101
